FAERS Safety Report 5298126-6 (Version None)
Quarter: 2007Q1

REPORT INFORMATION
  Report Type: 
  Country: None (occurrence: None)
  Receive Date: 20070201
  Receipt Date: 20061014
  Transmission Date: 20070707
  Serious: No
  Sender: FDA-Public Use
  Company Number: 2006PV024327

PATIENT
  Age: 73 Year
  Sex: Male

DRUGS (3)
  1. BYETTA [Suspect]
     Indication: DIABETES MELLITUS NON-INSULIN-DEPENDENT
     Dosage: SEE IMAGE
     Route: 057
     Dates: start: 20060701, end: 20061012
  2. BYETTA [Suspect]
     Indication: DIABETES MELLITUS NON-INSULIN-DEPENDENT
     Dosage: SEE IMAGE
     Route: 057
     Dates: start: 20061013
  3. LANTUS [Concomitant]

REACTIONS (3)
  - BLOOD GLUCOSE DECREASED [None]
  - FATIGUE [None]
  - MEDICATION ERROR [None]
